FAERS Safety Report 9140919 (Version 2)
Quarter: 2013Q2

REPORT INFORMATION
  Report Type: Report from Study
  Country: US (occurrence: US)
  Receive Date: 20130305
  Receipt Date: 20130501
  Transmission Date: 20140414
  Serious: Yes (Hospitalization)
  Sender: FDA-Public Use
  Company Number: US-GILEAD-2012-0066790

PATIENT
  Sex: Male

DRUGS (8)
  1. TENOFOVIR DISOPROXIL FUMARATE [Suspect]
     Indication: HIV INFECTION
     Dosage: UNK
     Dates: start: 200203
  2. LAMIVUDINE [Concomitant]
     Indication: HIV INFECTION
     Dosage: UNK
     Dates: start: 200203
  3. LOPINAVIR W/RITONAVIR [Concomitant]
     Indication: HIV INFECTION
     Dosage: UNK
     Dates: start: 200203
  4. ZIDOVUDINE [Concomitant]
     Indication: HIV INFECTION
     Dosage: UNK
     Dates: start: 200203
  5. ABACAVIR [Concomitant]
     Indication: HIV INFECTION
     Dosage: UNK
     Dates: start: 200203
  6. AMPRENAVIR [Concomitant]
     Indication: HIV INFECTION
     Dosage: UNK
     Dates: start: 200203
  7. SULFAMETHOXAZOLE W/TRIMETHOPRIM [Concomitant]
     Indication: PROPHYLAXIS
     Dosage: UNK
     Dates: start: 200203
  8. DIDANOSINE [Concomitant]
     Indication: HIV INFECTION
     Dosage: UNK
     Dates: start: 200207

REACTIONS (3)
  - Failure to thrive [Unknown]
  - Decreased appetite [Unknown]
  - Renal failure [Recovering/Resolving]
